FAERS Safety Report 5220570-3 (Version None)
Quarter: 2007Q1

REPORT INFORMATION
  Report Type: 
  Country: None (occurrence: None)
  Receive Date: 20070126
  Receipt Date: 20070122
  Transmission Date: 20070707
  Serious: Yes (Death)
  Sender: FDA-Public Use
  Company Number: RO-JNJFOC-20061004841

PATIENT
  Sex: Female
  Weight: 62 kg

DRUGS (8)
  1. BLINDED; ABCIXIMA [Suspect]
     Route: 042
  2. BLINDED; ABCIXIMA [Suspect]
     Indication: ACUTE MYOCARDIAL INFARCTION
     Route: 042
  3. RETEPLASE [Suspect]
     Indication: ACUTE MYOCARDIAL INFARCTION
     Route: 042
  4. PLACEBO [Suspect]
     Indication: ACUTE MYOCARDIAL INFARCTION
     Route: 042
  5. PLAVIX [Concomitant]
     Indication: PERCUTANEOUS CORONARY INTERVENTION
     Route: 048
  6. ASPIRIN [Concomitant]
     Indication: ACUTE MYOCARDIAL INFARCTION
     Route: 048
  7. HEPARIN [Concomitant]
     Indication: PERCUTANEOUS CORONARY INTERVENTION
     Route: 042
  8. LESCOL [Concomitant]
     Indication: ACUTE MYOCARDIAL INFARCTION
     Route: 048

REACTIONS (1)
  - CARDIOGENIC SHOCK [None]
